FAERS Safety Report 8536366-0 (Version None)
Quarter: 2012Q3

REPORT INFORMATION
  Report Type: 
  Country: None (occurrence: None)
  Receive Date: 20120725
  Receipt Date: 20120720
  Transmission Date: 20120928
  Serious: Yes (Other)
  Sender: FDA-Public Use
  Company Number: US-PFIZER INC-2012176291

PATIENT
  Sex: Male

DRUGS (3)
  1. MEGACE [Concomitant]
     Dosage: UNK
  2. SUTENT [Suspect]
     Dosage: 50 MG, DAILY
  3. SUTENT [Suspect]
     Indication: RENAL CANCER
     Dosage: UNK

REACTIONS (3)
  - NAUSEA [None]
  - ASCITES [None]
  - FATIGUE [None]
